FAERS Safety Report 11093000 (Version 1)
Quarter: 2015Q2

REPORT INFORMATION
  Report Type: Spontaneous
  Country: US (occurrence: None)
  Receive Date: 20150504
  Receipt Date: 20150504
  Transmission Date: 20150821
  Serious: Yes (Other)
  Sender: FDA-Public Use
  Company Number: AMAG2021500361

PATIENT
  Age: 43 Year
  Sex: Male

DRUGS (1)
  1. FERAHEME [Suspect]
     Active Substance: FERUMOXYTOL NON-STOICHIOMETRIC MAGNETITE
     Dates: start: 201504, end: 201504

REACTIONS (4)
  - Chest discomfort [None]
  - Back pain [None]
  - Dyspnoea [None]
  - Muscle contractions involuntary [None]

NARRATIVE: CASE EVENT DATE: 201504
